FAERS Safety Report 21451710 (Version 1)
Quarter: 2022Q4

REPORT INFORMATION
  Report Type: Spontaneous
  Country: FR (occurrence: FR)
  Receive Date: 20221013
  Receipt Date: 20221013
  Transmission Date: 20230112
  Serious: Yes (Life-Threatening, Hospitalization)
  Sender: FDA-Public Use
  Company Number: None

PATIENT
  Age: 74 Year
  Sex: Male
  Weight: 73 kg

DRUGS (7)
  1. METHOTREXATE (METHOTREXATE SODIUM) [Suspect]
     Active Substance: METHOTREXATE SODIUM
     Indication: Product used for unknown indication
     Dosage: J1, STRENGTH : 10 PER CENT (5 G/50 ML), UNIT DOSE : 6000MG, DURATION : 2 HOURS, FREQUENCY TIME : 1 C
     Route: 065
     Dates: start: 20220629, end: 20220629
  2. VINCRISTINE SULFATE [Concomitant]
     Active Substance: VINCRISTINE SULFATE
     Indication: Central nervous system lymphoma
     Dosage: D1 AND D15, UNIT DOSE :  1.5 MG, FREQUENCY TIME : 1 CYCLICAL, DURATION : 30 MINUTES
     Dates: start: 20220629, end: 20220629
  3. RITUXIMAB [Concomitant]
     Active Substance: RITUXIMAB
     Indication: Central nervous system lymphoma
     Dosage: J1, RITUXIMAB ((MAMMAL/HAMSTER/CHO CELLS)), UNIT DOSE :  700MG, FREQUENCY TIME : 1 CYCLICAL, DURATIO
     Dates: start: 20220629, end: 20220629
  4. BISOPROLOL FUMARATE [Concomitant]
     Active Substance: BISOPROLOL FUMARATE
     Indication: Arrhythmia
     Dosage: UNIT DOSE :  2.5 MG, FREQUENCY TIME : 12 HOURS
  5. PROCARBAZINE [Concomitant]
     Active Substance: PROCARBAZINE
     Indication: Central nervous system lymphoma
     Dosage: J1, UNIT DOSE : 150 MG, FREQUENCY TIME : 1 CYCLICAL, ,   DURATION : 2 HOURS
     Dates: start: 20220629, end: 20220629
  6. LAMICTAL [Concomitant]
     Active Substance: LAMOTRIGINE
     Indication: Product used for unknown indication
     Dosage: UNIT DOSE : 1 DOSAGE FORM ,  FREQUENCY TIME : 1 DAY, STRENGTH : 100MG
  7. KARDEGIC [Concomitant]
     Active Substance: ASPIRIN DL-LYSINE
     Indication: Prophylaxis
     Dosage: STRENGTH : 160 MG, IN SACHET, UNIT DOSE : 1 DOSAGE FORM ,  FREQUENCY TIME : 12 HOURS

REACTIONS (2)
  - Drug level increased [Recovered/Resolved]
  - Acute kidney injury [Recovered/Resolved]

NARRATIVE: CASE EVENT DATE: 20220630
